FAERS Safety Report 4694278-7 (Version None)
Quarter: 2005Q2

REPORT INFORMATION
  Report Type: 
  Country: None (occurrence: None)
  Receive Date: 20050620
  Receipt Date: 20050615
  Transmission Date: 20051028
  Serious: Yes (Other)
  Sender: FDA-Public Use
  Company Number: 200511769JP

PATIENT
  Age: 78 Year
  Sex: Male
  Weight: 44 kg

DRUGS (10)
  1. LASIX [Suspect]
     Route: 048
  2. AMARYL [Suspect]
     Indication: DIABETES MELLITUS
     Route: 048
  3. DIGOXIN [Concomitant]
  4. CLARITHROMYCIN [Concomitant]
  5. THEO-DUR [Concomitant]
  6. CHLORMADINONE ACETATE TAB [Concomitant]
  7. GRAMALIL [Concomitant]
  8. MARZULENE [Concomitant]
  9. MAGNESIUM OXIDE [Concomitant]
  10. HOKUNALIN [Concomitant]

REACTIONS (2)
  - CONVULSION [None]
  - HYPOGLYCAEMIA [None]
